FAERS Safety Report 7693580-4 (Version None)
Quarter: 2011Q3

REPORT INFORMATION
  Report Type: 
  Country: None (occurrence: None)
  Receive Date: 20110819
  Receipt Date: 20110810
  Transmission Date: 20111222
  Serious: Yes (Other)
  Sender: FDA-Public Use
  Company Number: PHFR2010GB01606

PATIENT
  Sex: Male

DRUGS (1)
  1. CLOZAPINE [Suspect]
     Dosage: 300 MG, QD
     Route: 048
     Dates: start: 20100713

REACTIONS (4)
  - HEART RATE INCREASED [None]
  - WEIGHT INCREASED [None]
  - OBESITY [None]
  - HYPERTENSION [None]
